FAERS Safety Report 8388755-5 (Version None)
Quarter: 2012Q2

REPORT INFORMATION
  Report Type: 
  Country: None (occurrence: None)
  Receive Date: 20120528
  Receipt Date: 20120514
  Transmission Date: 20120825
  Serious: Yes (Other)
  Sender: FDA-Public Use
  Company Number: DE-BRISTOL-MYERS SQUIBB COMPANY-16589251

PATIENT
  Age: 60 Year
  Sex: Male

DRUGS (3)
  1. CISPLATIN [Suspect]
     Indication: METASTATIC GASTRIC CANCER
  2. FLUOROURACIL [Suspect]
     Indication: METASTATIC GASTRIC CANCER
  3. DOCETAXEL [Suspect]
     Indication: METASTATIC GASTRIC CANCER

REACTIONS (1)
  - AORTIC ANEURYSM [None]
